FAERS Safety Report 21098340 (Version 4)
Quarter: 2023Q1

REPORT INFORMATION
  Report Type: Spontaneous
  Country: JP (occurrence: JP)
  Receive Date: 20220719
  Receipt Date: 20230330
  Transmission Date: 20230417
  Serious: Yes (Death, Life-Threatening, Hospitalization, Other)
  Sender: FDA-Public Use
  Company Number: JP-ASTELLAS-2022JP010890

PATIENT
  Age: 78 Year
  Sex: Male
  Weight: 46 kg

DRUGS (3)
  1. XTANDI [Suspect]
     Active Substance: ENZALUTAMIDE
     Indication: Hormone-refractory prostate cancer
     Route: 048
     Dates: start: 20211102, end: 20220712
  2. FLUTAMIDE [Concomitant]
     Active Substance: FLUTAMIDE
     Indication: Product used for unknown indication
     Dosage: UNK UNK, UNKNOWN FREQ.
     Route: 065
     Dates: start: 20170111
  3. ESTRAMUSTINE [Concomitant]
     Active Substance: ESTRAMUSTINE
     Indication: Hormone-refractory prostate cancer
     Route: 048
     Dates: start: 20201021, end: 20211102

REACTIONS (3)
  - Myelodysplastic syndrome [Fatal]
  - Pancytopenia [Unknown]
  - Prescribed underdose [Unknown]

NARRATIVE: CASE EVENT DATE: 20211102
